FAERS Safety Report 6218878-8 (Version None)
Quarter: 2009Q2

REPORT INFORMATION
  Report Type: 
  Country: None (occurrence: None)
  Receive Date: 20090608
  Receipt Date: 20090525
  Transmission Date: 20091009
  Serious: Yes (Hospitalization)
  Sender: FDA-Public Use
  Company Number: SE-ELI_LILLY_AND_COMPANY-SE200906000645

PATIENT
  Age: 25 Year
  Sex: Female

DRUGS (6)
  1. CYMBALTA [Suspect]
     Indication: ANXIETY
     Dosage: 30 MG, DAILY (1/D)
     Route: 048
     Dates: start: 20081101
  2. CYMBALTA [Suspect]
     Dosage: 60 MG, DAILY (1/D)
     Route: 048
     Dates: end: 20090218
  3. ALVEDON [Concomitant]
     Dosage: UNK, UNKNOWN
     Route: 065
  4. LYRICA [Concomitant]
     Dosage: UNK, UNKNOWN
     Route: 065
  5. ATARAX [Concomitant]
     Dosage: UNK, UNKNOWN
     Route: 065
  6. OXASCAND [Concomitant]
     Dosage: 10 MG, UNKNOWN
     Route: 065

REACTIONS (3)
  - DIPLOPIA [None]
  - DIZZINESS [None]
  - SYNCOPE [None]
